FAERS Safety Report 16090871 (Version 1)
Quarter: 2019Q1

REPORT INFORMATION
  Report Type: Report from Study
  Country: FR (occurrence: FR)
  Receive Date: 20190319
  Receipt Date: 20190319
  Transmission Date: 20190418
  Serious: Yes (Other)
  Sender: FDA-Public Use
  Company Number: FR-PROVELL PHARMACEUTICALS-2064263

PATIENT
  Age: 73 Year
  Sex: Female

DRUGS (1)
  1. EUTHYROX [Suspect]
     Active Substance: LEVOTHYROXINE SODIUM
     Indication: POST PROCEDURAL HYPOTHYROIDISM

REACTIONS (12)
  - Liver disorder [None]
  - Urinary cystectomy [None]
  - Fatigue [None]
  - Insomnia [None]
  - Gait disturbance [None]
  - Headache [None]
  - Pain [None]
  - Red blood cell sedimentation rate increased [None]
  - Age-related macular degeneration [None]
  - Depression [None]
  - Foot operation [None]
  - Cortisol abnormal [None]
